FAERS Safety Report 4461766-8 (Version None)
Quarter: 2004Q3

REPORT INFORMATION
  Report Type: 
  Country: None (occurrence: None)
  Receive Date: 20040929
  Receipt Date: 20031013
  Transmission Date: 20050211
  Serious: No
  Sender: FDA-Public Use
  Company Number: US-GLAXOSMITHKLINE-A0429980A

PATIENT
  Age: 81 Year
  Sex: Female
  Weight: 55 kg

DRUGS (13)
  1. SEREVENT [Suspect]
     Indication: ASTHMA
     Dosage: 50MCG PER DAY
  2. PAXIL [Suspect]
     Indication: DEPRESSION
     Dosage: 12.5MG PER DAY
     Route: 048
     Dates: start: 20040330
  3. ALBUTEROL [Concomitant]
  4. INTAL [Concomitant]
  5. PULMICORT [Concomitant]
  6. FORADIL [Concomitant]
  7. METHOTREXATE [Concomitant]
     Indication: ASTHMA
  8. ATIVAN [Concomitant]
  9. MECLIZINE [Concomitant]
  10. ZYRTEC [Concomitant]
  11. AEROBID [Concomitant]
  12. ACTONEL [Concomitant]
  13. LORAZEPAM [Concomitant]

REACTIONS (8)
  - ASTHENIA [None]
  - ASTHMA [None]
  - DIZZINESS [None]
  - FATIGUE [None]
  - IDIOSYNCRATIC DRUG REACTION [None]
  - INSOMNIA [None]
  - NAUSEA [None]
  - SOMNOLENCE [None]
